FAERS Safety Report 20487866 (Version 1)
Quarter: 2022Q1

REPORT INFORMATION
  Report Type: Spontaneous
  Country: US (occurrence: US)
  Receive Date: 20220218
  Receipt Date: 20220218
  Transmission Date: 20220424
  Serious: Yes (Hospitalization, Other)
  Sender: FDA-Public Use
  Company Number: US-Global Blood Therapeutics Inc-US-GBT-22-00487

PATIENT
  Age: 27 Year
  Sex: Male

DRUGS (2)
  1. OXBRYTA [Suspect]
     Active Substance: VOXELOTOR
     Indication: Sickle cell disease
     Route: 048
     Dates: start: 20211118
  2. OXBRYTA [Suspect]
     Active Substance: VOXELOTOR
     Dosage: EVERY OTHER DAY
     Route: 048
     Dates: start: 2022

REACTIONS (7)
  - Sickle cell anaemia with crisis [Unknown]
  - Renal failure [Unknown]
  - Cardiac failure congestive [Unknown]
  - Abdominal pain upper [Unknown]
  - Headache [Unknown]
  - Product dose omission issue [Unknown]
  - Off label use [Unknown]

NARRATIVE: CASE EVENT DATE: 20220101
